FAERS Safety Report 8886606 (Version 5)
Quarter: 2013Q4

REPORT INFORMATION
  Report Type: Spontaneous
  Country: US (occurrence: US)
  Receive Date: 20121105
  Receipt Date: 20131120
  Transmission Date: 20140711
  Serious: Yes (Hospitalization, Disabling, Other)
  Sender: FDA-Public Use
  Company Number: US-009507513-1210USA010382

PATIENT
  Sex: Female

DRUGS (8)
  1. FOSAMAX [Suspect]
     Indication: OSTEOPOROSIS
     Dosage: 10 MG, UNK
     Route: 048
     Dates: start: 19961209, end: 200603
  2. FOSAMAX [Suspect]
     Dosage: 70 MG, UNK
     Route: 048
     Dates: start: 19961209, end: 200603
  3. ALENDRONATE SODIUM [Suspect]
     Indication: OSTEOPOROSIS
     Dosage: 70 MG, UNK
     Dates: start: 201203
  4. LOTENSIN (CAPTOPRIL) [Concomitant]
     Indication: HYPERTENSION
     Dosage: UNK
     Dates: start: 1995, end: 200211
  5. ANTIVERT (MECLIZINE HYDROCHLORIDE) [Concomitant]
     Indication: VERTIGO
     Dosage: UNK
     Dates: start: 1996, end: 200202
  6. PREVACID [Concomitant]
     Indication: GASTROOESOPHAGEAL REFLUX DISEASE
     Dosage: UNK
     Dates: start: 1996, end: 2009
  7. ZANTAC [Concomitant]
     Indication: GASTROOESOPHAGEAL REFLUX DISEASE
     Dosage: UNK
     Dates: start: 1996, end: 1996
  8. PRILOSEC [Concomitant]
     Indication: GASTROOESOPHAGEAL REFLUX DISEASE
     Dosage: UNK
     Dates: start: 200002, end: 201105

REACTIONS (43)
  - Internal fixation of fracture [Not Recovered/Not Resolved]
  - Intramedullary rod insertion [Unknown]
  - Intramedullary rod insertion [Unknown]
  - Low turnover osteopathy [Not Recovered/Not Resolved]
  - Stress fracture [Not Recovered/Not Resolved]
  - Osteoporosis [Not Recovered/Not Resolved]
  - Renal failure chronic [Not Recovered/Not Resolved]
  - Removal of internal fixation [Unknown]
  - Cholecystectomy [Unknown]
  - Coronary angioplasty [Unknown]
  - Bone graft [Unknown]
  - Hypotension [Unknown]
  - Thyroidectomy [Unknown]
  - Coronary arterial stent insertion [Unknown]
  - Pancreatitis acute [Unknown]
  - Hyperosmolar state [Unknown]
  - Haematemesis [Unknown]
  - Medical device removal [Unknown]
  - Pubis fracture [Unknown]
  - Femur fracture [Not Recovered/Not Resolved]
  - Femur fracture [Not Recovered/Not Resolved]
  - Rib fracture [Unknown]
  - Blood cholesterol increased [Unknown]
  - Tendon sheath incision [Unknown]
  - Infection [Unknown]
  - Infection [Unknown]
  - Pain [Unknown]
  - Spondylitis [Unknown]
  - Osteoarthritis [Unknown]
  - Restless legs syndrome [Unknown]
  - Tonsillectomy [Unknown]
  - Tendon sheath incision [Unknown]
  - Fracture nonunion [Unknown]
  - Intervertebral disc degeneration [Unknown]
  - Perineurial cyst [Unknown]
  - Radius fracture [Unknown]
  - Arteriosclerosis [Unknown]
  - Dehydration [Unknown]
  - Ileus [Unknown]
  - Hiatus hernia [Unknown]
  - Pleural effusion [Unknown]
  - Hypercalcaemia [Unknown]
  - Medical device pain [Unknown]
